FAERS Safety Report 4898617-3 (Version None)
Quarter: 2006Q1

REPORT INFORMATION
  Report Type: 
  Country: None (occurrence: None)
  Receive Date: 20060202
  Receipt Date: 20060125
  Transmission Date: 20060701
  Serious: Yes (Hospitalization)
  Sender: FDA-Public Use
  Company Number: US-JNJFOC-20060105549

PATIENT
  Sex: Male
  Weight: 71.22 kg

DRUGS (14)
  1. DURAGESIC-100 [Suspect]
     Route: 062
  2. FENTANYL [Suspect]
     Route: 062
  3. FENTANYL [Suspect]
     Route: 062
  4. PREVACID [Concomitant]
     Indication: GASTROINTESTINAL DISORDER
     Route: 048
  5. ACYCLOVIR [Concomitant]
     Route: 048
  6. AMBIEN [Concomitant]
     Indication: SLEEP DISORDER
     Route: 048
  7. VIRAMUNE [Concomitant]
     Indication: ANTIVIRAL PROPHYLAXIS
     Route: 048
  8. GLIPIZIDE [Concomitant]
     Route: 048
  9. NEURONTIN [Concomitant]
     Route: 048
  10. SONATA [Concomitant]
     Indication: SLEEP DISORDER
     Route: 048
  11. ENALAPRIL [Concomitant]
     Route: 048
  12. TRIZIVIR [Concomitant]
     Route: 048
  13. TRIZIVIR [Concomitant]
     Route: 048
  14. TRIZIVIR [Concomitant]
     Indication: ANTIVIRAL PROPHYLAXIS
     Route: 048

REACTIONS (9)
  - ANXIETY [None]
  - BLOOD CHOLESTEROL INCREASED [None]
  - CARDIAC ENZYMES INCREASED [None]
  - CHEST PAIN [None]
  - CORONARY ARTERY OCCLUSION [None]
  - HYPERHIDROSIS [None]
  - MYOCARDIAL INFARCTION [None]
  - PLATELET DISORDER [None]
  - WEIGHT DECREASED [None]
